FAERS Safety Report 7775526-3 (Version None)
Quarter: 2011Q3

REPORT INFORMATION
  Report Type: 
  Country: None (occurrence: None)
  Receive Date: 20110923
  Receipt Date: 20110912
  Transmission Date: 20111222
  Serious: Yes (Life-Threatening, Hospitalization)
  Sender: FDA-Public Use
  Company Number: JP-NOVOPROD-333293

PATIENT

DRUGS (8)
  1. ASPIRIN [Concomitant]
     Dosage: 100 MG, QD
     Route: 048
     Dates: start: 20110525
  2. MAGMITT [Concomitant]
     Dosage: 1980 MG, QD
     Route: 048
     Dates: start: 20110726
  3. VICTOZA [Suspect]
     Indication: LATENT AUTOIMMUNE DIABETES IN ADULTS
     Dosage: 0.3 MG, QD, AT 8 AM IN THE MORNING
     Route: 058
     Dates: start: 20110803
  4. VICTOZA [Suspect]
     Dosage: 0.6 MG, QD AT 8 AM IN THE MORNING
     Route: 058
     Dates: start: 20110805, end: 20110805
  5. NOVORAPID CHU FLEXPEN [Concomitant]
     Indication: TYPE 1 DIABETES MELLITUS
     Dosage: 11 U (6-0-5-0), QD
     Route: 065
  6. METFORMIN HCL [Concomitant]
     Dosage: 750 MG, QD
     Route: 048
     Dates: start: 20110727, end: 20110805
  7. LANTUS [Concomitant]
     Dosage: 5 U, (0-0-0-5) QD
     Route: 058
  8. EPL [Concomitant]
     Dosage: 750 MG, QD
     Route: 048

REACTIONS (3)
  - OXYGEN SATURATION DECREASED [None]
  - HYPOTENSION [None]
  - URTICARIA [None]
